FAERS Safety Report 5901832-0 (Version None)
Quarter: 2008Q3

REPORT INFORMATION
  Report Type: 
  Country: None (occurrence: None)
  Receive Date: 20080929
  Receipt Date: 20080916
  Transmission Date: 20090109
  Serious: Yes (Other)
  Sender: FDA-Public Use
  Company Number: JP-ROCHE-575815

PATIENT
  Sex: Female
  Weight: 60 kg

DRUGS (11)
  1. XELODA [Suspect]
     Indication: BREAST CANCER METASTATIC
     Dosage: DRUG NAME REPORTED: XELODA 300
     Route: 048
     Dates: start: 20080519, end: 20080624
  2. XELODA [Suspect]
     Route: 048
     Dates: start: 20060601, end: 20070301
  3. TAXOTERE [Suspect]
     Indication: BREAST CANCER METASTATIC
     Route: 041
     Dates: start: 20080519, end: 20080610
  4. NAVELBINE [Concomitant]
     Route: 042
     Dates: start: 20070501, end: 20071001
  5. TAXOL [Concomitant]
     Route: 041
     Dates: start: 20071101, end: 20080401
  6. PYDOXAL [Concomitant]
     Route: 048
     Dates: start: 20080519, end: 20080624
  7. DECADRON [Concomitant]
     Route: 041
     Dates: start: 20080519, end: 20080610
  8. KYTRIL [Concomitant]
     Route: 041
     Dates: start: 20080519, end: 20080610
  9. FAMOTIDINE [Concomitant]
     Route: 041
     Dates: start: 20080519, end: 20080610
  10. LOXONIN [Concomitant]
     Route: 048
  11. NEOMALLERMIN-TR [Concomitant]
     Dosage: DRUG NAME: NEOMALLERMIN
     Route: 048

REACTIONS (2)
  - CONSTIPATION [None]
  - RECTAL ULCER [None]
